FAERS Safety Report 24966419 (Version 3)
Quarter: 2025Q2

REPORT INFORMATION
  Report Type: Spontaneous
  Country: CZ (occurrence: CZ)
  Receive Date: 20250213
  Receipt Date: 20250401
  Transmission Date: 20250716
  Serious: Yes (Other)
  Sender: ALEXION PHARMACEUTICALS
  Company Number: CZ-AstraZeneca-CH-00804617A

PATIENT
  Weight: 108 kg

DRUGS (1)
  1. DAPAGLIFLOZIN [Suspect]
     Active Substance: DAPAGLIFLOZIN
     Indication: Cardiac disorder
     Route: 065

REACTIONS (6)
  - Renal impairment [Unknown]
  - Constipation [Unknown]
  - Thirst [Unknown]
  - Limb discomfort [Unknown]
  - Pruritus genital [Unknown]
  - Withdrawal syndrome [Unknown]
